FAERS Safety Report 25502855 (Version 5)
Quarter: 2025Q3

REPORT INFORMATION
  Report Type: Report from Study
  Country: CA (occurrence: CA)
  Receive Date: 20250702
  Receipt Date: 20250812
  Transmission Date: 20251020
  Serious: Yes (Hospitalization, Other)
  Sender: TAKEDA
  Company Number: CA-TAKEDA-2025TUS058127

PATIENT
  Sex: Male

DRUGS (3)
  1. VEDOLIZUMAB [Suspect]
     Active Substance: VEDOLIZUMAB
     Indication: Colitis ulcerative
  2. Salofalk [Concomitant]
     Dosage: UNK UNK, QD
     Dates: start: 2010
  3. B12 [Concomitant]

REACTIONS (1)
  - Coronary artery occlusion [Unknown]
